FAERS Safety Report 15564262 (Version 2)
Quarter: 2018Q4

REPORT INFORMATION
  Report Type: Spontaneous
  Country: US (occurrence: US)
  Receive Date: 20181030
  Receipt Date: 20181030
  Transmission Date: 20190205
  Serious: No
  Sender: FDA-Public Use
  Company Number: US-APOTEX-2018AP016837

PATIENT
  Sex: Female

DRUGS (1)
  1. FLUTICASONE PROPIONATE NASAL SPRAY USP [Suspect]
     Active Substance: FLUTICASONE PROPIONATE
     Indication: PRODUCT USED FOR UNKNOWN INDICATION
     Dosage: UNK
     Route: 065

REACTIONS (6)
  - Ear discomfort [Recovered/Resolved]
  - Dyspnoea [Recovered/Resolved]
  - Dysphonia [Recovered/Resolved]
  - Drug ineffective [Unknown]
  - Dysphagia [Recovered/Resolved]
  - Oral discomfort [Recovered/Resolved]

NARRATIVE: CASE EVENT DATE: 201805
